FAERS Safety Report 26103390 (Version 2)
Quarter: 2025Q4

REPORT INFORMATION
  Report Type: Spontaneous
  Country: EU (occurrence: EU)
  Receive Date: 20251129
  Receipt Date: 20251221
  Transmission Date: 20260118
  Serious: Yes (Other)
  Sender: AUROBINDO
  Company Number: EU-BRISTOL-MYERS SQUIBB COMPANY-BMS-2004-000027

PATIENT
  Age: 36 Year
  Sex: Female

DRUGS (7)
  1. ACETAMINOPHEN [Suspect]
     Active Substance: ACETAMINOPHEN
     Indication: Neuritis
     Dosage: 1 DF, QD, FREQUENCY : QD
     Route: 065
  2. ACETAMINOPHEN [Suspect]
     Active Substance: ACETAMINOPHEN
     Indication: Sciatica
     Dosage: MATERNAL DOSE (8-9 G, QD),
     Route: 061
  3. ACETAMINOPHEN [Suspect]
     Active Substance: ACETAMINOPHEN
     Dosage: 1-2G MATERNAL DOSE: 1 DF, QD (1UG/LITRE)
     Route: 061
  4. ACETAMINOPHEN [Suspect]
     Active Substance: ACETAMINOPHEN
     Dosage: 1-2 G/DAY (4TH MONTH TO DELIVERY)
     Route: 065
  5. NIMESULIDE [Suspect]
     Active Substance: NIMESULIDE
     Indication: Sciatica
     Dosage: 1 DF, QD, FREQUENCY : QD100- 200MG
     Route: 061
  6. NIMESULIDE [Suspect]
     Active Substance: NIMESULIDE
     Indication: Neuritis
     Dosage: 100 MG, QD
     Route: 061
  7. DICLOFENAC SODIUM [Suspect]
     Active Substance: DICLOFENAC SODIUM
     Indication: Sciatica
     Dosage: 75 MILLIGRAM, ONCE A DAY
     Route: 061

REACTIONS (6)
  - Oligohydramnios [Unknown]
  - Amniotic cavity disorder [Unknown]
  - Caesarean section [Unknown]
  - Premature delivery [Unknown]
  - Maternal exposure during pregnancy [Recovered/Resolved]
  - Overdose [Unknown]
